FAERS Safety Report 4783254-1 (Version None)
Quarter: 2005Q3

REPORT INFORMATION
  Report Type: 
  Country: None (occurrence: None)
  Receive Date: 20050914
  Receipt Date: 20050615
  Transmission Date: 20060218
  Serious: Yes (Hospitalization, Other)
  Sender: FDA-Public Use
  Company Number: 163-20785-05060244

PATIENT
  Age: 73 Year
  Sex: Male

DRUGS (4)
  1. THALOMID [Suspect]
     Indication: MYELODYSPLASTIC SYNDROME
     Dosage: 100 + 50 MG, DAILY, ORAL
     Route: 048
     Dates: end: 20050401
  2. THALOMID [Suspect]
     Indication: MYELODYSPLASTIC SYNDROME
     Dosage: 100 + 50 MG, DAILY, ORAL
     Route: 048
     Dates: start: 20040201
  3. VIDAZA [Concomitant]
  4. ALTACE [Concomitant]

REACTIONS (4)
  - CONDITION AGGRAVATED [None]
  - DYSPNOEA [None]
  - EPISTAXIS [None]
  - HAEMORRHAGE [None]
